FAERS Safety Report 9154558 (Version 1)
Quarter: 2013Q1

REPORT INFORMATION
  Report Type: Spontaneous
  Country: US (occurrence: None)
  Receive Date: 20130206
  Receipt Date: 20130206
  Transmission Date: 20140127
  Serious: Yes (Hospitalization)
  Sender: FDA-Public Use
  Company Number: CL-470-2013

PATIENT
  Age: 29 Year
  Sex: Female

DRUGS (4)
  1. METRONIDAZOL [Suspect]
  2. LEVETIRACETAM [Suspect]
  3. VORICONAZOLE [Concomitant]
  4. CLOBAZAM [Concomitant]

REACTIONS (1)
  - Toxic epidermal necrolysis [None]
